FAERS Safety Report 5256980-8 (Version None)
Quarter: 2007Q1

REPORT INFORMATION
  Report Type: 
  Country: None (occurrence: None)
  Receive Date: 20070307
  Receipt Date: 20070302
  Transmission Date: 20070707
  Serious: Yes (Other)
  Sender: FDA-Public Use
  Company Number: US-BRISTOL-MYERS SQUIBB COMPANY-13680830

PATIENT
  Age: 12 Year
  Sex: Male

DRUGS (1)
  1. AMPHOTERICIN B [Suspect]

REACTIONS (1)
  - NEPHROGENIC DIABETES INSIPIDUS [None]
